FAERS Safety Report 18079292 (Version 1)
Quarter: 2020Q3

REPORT INFORMATION
  Report Type: Spontaneous
  Country: US (occurrence: US)
  Receive Date: 20200727
  Receipt Date: 20200727
  Transmission Date: 20201103
  Serious: Yes (Death)
  Sender: FDA-Public Use
  Company Number: None

PATIENT
  Age: 34 Year
  Sex: Female
  Weight: 111 kg

DRUGS (5)
  1. YESCARTA [Suspect]
     Active Substance: AXICABTAGENE CILOLEUCEL
     Indication: DIFFUSE LARGE B-CELL LYMPHOMA
     Dosage: ?          OTHER ROUTE:IV INFUSION?
     Dates: start: 20200427
  2. ANAKINRA (KINERET) [Concomitant]
  3. TOCLIZUMAB [Concomitant]
  4. HIGH DOSE DEXAMETHASONE OR METHYLPREDNISOLONE [Concomitant]
  5. FOSACARNET [Concomitant]

REACTIONS (9)
  - Cardiac arrest [None]
  - Immune effector cell-associated neurotoxicity syndrome [None]
  - Cytokine release syndrome [None]
  - Respiratory failure [None]
  - Motor dysfunction [None]
  - Dyspnoea [None]
  - Muscular weakness [None]
  - Myelitis [None]
  - Roseolovirus test positive [None]

NARRATIVE: CASE EVENT DATE: 20200521
